FAERS Safety Report 9431786 (Version 1)
Quarter: 2013Q3

REPORT INFORMATION
  Report Type: Spontaneous
  Country: US (occurrence: None)
  Receive Date: 20130726
  Receipt Date: 20130726
  Transmission Date: 20140515
  Serious: Yes (Other)
  Sender: FDA-Public Use
  Company Number: 2013AP006819

PATIENT
  Age: 21 Year
  Sex: Female
  Weight: 67.4 kg

DRUGS (2)
  1. FERRIPROX [Suspect]
     Indication: IRON OVERLOAD
     Route: 048
     Dates: start: 20120629, end: 20121102
  2. DEFERASIROX [Suspect]

REACTIONS (3)
  - Fatigue [None]
  - Disturbance in attention [None]
  - Educational problem [None]
